FAERS Safety Report 12762252 (Version 1)
Quarter: 2016Q3

REPORT INFORMATION
  Report Type: Report from Study
  Country: BE (occurrence: BE)
  Receive Date: 20160920
  Receipt Date: 20160920
  Transmission Date: 20161109
  Serious: Yes (Hospitalization, Other)
  Sender: FDA-Public Use
  Company Number: PHHY2016BE072942

PATIENT
  Sex: Female

DRUGS (4)
  1. AROMASIN [Concomitant]
     Active Substance: EXEMESTANE
     Dosage: UNK
     Route: 065
     Dates: start: 2016
  2. AROMASIN [Concomitant]
     Active Substance: EXEMESTANE
     Indication: PRODUCT USED FOR UNKNOWN INDICATION
     Dosage: UNK
     Route: 065
     Dates: end: 2016
  3. AFINITOR [Suspect]
     Active Substance: EVEROLIMUS
     Indication: PLEURAL EFFUSION
     Dosage: 10 MG, QD
     Route: 048
     Dates: start: 2016
  4. AFINITOR [Suspect]
     Active Substance: EVEROLIMUS
     Indication: BREAST CANCER
     Dosage: 10 MG, QD
     Route: 048
     Dates: start: 20160509, end: 2016

REACTIONS (8)
  - Large intestine perforation [Unknown]
  - Product use issue [Unknown]
  - Perforation [Unknown]
  - Dysphonia [Not Recovered/Not Resolved]
  - Pneumonia [Recovering/Resolving]
  - Haemothorax [Recovering/Resolving]
  - Cough [Not Recovered/Not Resolved]
  - Malignant neoplasm progression [Unknown]
